FAERS Safety Report 5753238-5 (Version None)
Quarter: 2008Q2

REPORT INFORMATION
  Report Type: 
  Country: None (occurrence: None)
  Receive Date: 20080530
  Receipt Date: 20070522
  Transmission Date: 20081010
  Serious: No
  Sender: FDA-Public Use
  Company Number: A0652393A

PATIENT
  Age: 10 Year
  Sex: Male

DRUGS (4)
  1. VENTOLIN HFA [Suspect]
     Indication: DRUG USE FOR UNKNOWN INDICATION
     Dosage: 2PUFF FOUR TIMES PER DAY
     Route: 055
     Dates: start: 20070522
  2. ADVAIR DISKUS 100/50 [Concomitant]
  3. ROBITUSSIN COUGH + CONGESTION [Concomitant]
  4. AZITHROMYCIN [Concomitant]

REACTIONS (1)
  - NAUSEA [None]
